FAERS Safety Report 12833353 (Version 1)
Quarter: 2016Q4

REPORT INFORMATION
  Report Type: Report from Study
  Country: US (occurrence: US)
  Receive Date: 20161010
  Receipt Date: 20161010
  Transmission Date: 20170207
  Serious: Yes (Hospitalization)
  Sender: FDA-Public Use
  Company Number: US-ACTELION-A-US2016-143464

PATIENT
  Age: 55 Year
  Sex: Female

DRUGS (3)
  1. REMODULIN [Concomitant]
     Active Substance: TREPROSTINIL
  2. WARFARIN [Concomitant]
     Active Substance: WARFARIN
  3. TRACLEER [Suspect]
     Active Substance: BOSENTAN
     Indication: PULMONARY ARTERIAL HYPERTENSION
     Dosage: 125 MG, BID
     Route: 048
     Dates: start: 20141017

REACTIONS (4)
  - Gastroenteritis viral [Unknown]
  - Vomiting [Unknown]
  - Dyspnoea [Unknown]
  - Pulmonary congestion [Unknown]
